FAERS Safety Report 22249492 (Version 1)
Quarter: 2023Q2

REPORT INFORMATION
  Report Type: Spontaneous
  Country: US (occurrence: None)
  Receive Date: 20230424
  Receipt Date: 20230424
  Transmission Date: 20230722
  Serious: Yes (unspecified)
  Sender: FDA-Public Use
  Company Number: None

PATIENT
  Age: 63 Year
  Sex: Male

DRUGS (8)
  1. CABENUVA [Suspect]
     Active Substance: CABOTEGRAVIR\RILPIVIRINE
     Indication: HIV infection
     Dosage: 6 ML EVERY OTHER MONTH INTRAMUSCULAR?
     Route: 030
     Dates: start: 20221012, end: 20230213
  2. ACYCLOVIR 400 MG TABLETS [Concomitant]
  3. ATORVASTATIN CALCIUM [Concomitant]
     Active Substance: ATORVASTATIN CALCIUM
  4. CETERIZINE 10 MG TABLETS [Concomitant]
  5. CYANOICOBALAMIN 1000 MCG INJECTION [Concomitant]
  6. ENALAPRIL [Concomitant]
     Active Substance: ENALAPRIL
  7. FAMOTIDINE 20 MG TABLETS [Concomitant]
  8. VITAMIN D 2 50,000 UNITS CAPSULE [Concomitant]

REACTIONS (2)
  - Viral load increased [None]
  - Therapy cessation [None]

NARRATIVE: CASE EVENT DATE: 20230214
